FAERS Safety Report 24030887 (Version 2)
Quarter: 2024Q4

REPORT INFORMATION
  Report Type: Spontaneous
  Country: ES (occurrence: ES)
  Receive Date: 20240628
  Receipt Date: 20241114
  Transmission Date: 20250115
  Serious: Yes (Other)
  Sender: NOVARTIS
  Company Number: None

PATIENT
  Age: 57 Year
  Sex: Female

DRUGS (1)
  1. INCLISIRAN [Suspect]
     Active Substance: INCLISIRAN
     Indication: Dyslipidaemia
     Dosage: UNK (PRIMERA DOSIS DEL F?RMACO (284MG))
     Route: 058
     Dates: start: 20240322, end: 20240614

REACTIONS (3)
  - Injection site reaction [Recovered/Resolved]
  - Toxic skin eruption [Recovered/Resolved]
  - Cellulitis [Recovered/Resolved]

NARRATIVE: CASE EVENT DATE: 20240322
